FAERS Safety Report 6986129 (Version 2)
Quarter: 2012Q4

REPORT INFORMATION
  Report Type: 
  Country: US (occurrence: None)
  Receive Date: 20090427
  Receipt Date: 20120912
  Transmission Date: 20130627
  Serious: Yes (Hospitalization, Other)
  Sender: FDA-Public Use
  Company Number: 2009AP001473

PATIENT
  Age: 57 Year
  Sex: Male

DRUGS (14)
  1. AMIODARONE HCL [Suspect]
     Indication: ATRIAL FIBRILLATION
     Dosage: 150 MG;1X;IV ; 1 MG/MIN ; 0.5 MG/MIN ; 400 MG;BID ; 200 MG;QD
     Route: 042
  2. AMIODARONE HCL [Suspect]
     Indication: ATRIAL FIBRILLATION
  3. AMIODARONE HCL [Suspect]
     Indication: ATRIAL FIBRILLATION
  4. SIROLIMUS [Suspect]
     Indication: IMMUNOSUPPRESSION
     Dosage: 4 MG;QD
  5. ACETYLSALICYLIC ACID [Concomitant]
  6. CARVEDILOL [Concomitant]
  7. ESOMEPRAZOLE MAGNESIUM [Concomitant]
  8. EZETIMIBE [Concomitant]
  9. OLANZAPINE [Concomitant]
  10. SERTRALINE HYDROCHLORIDE [Concomitant]
  11. TIOTROPIUM [Concomitant]
  12. ALBUTEROL [Concomitant]
  13. WARFARIN SODIUM [Concomitant]
  14. ISONIAZID [Concomitant]

REACTIONS (20)
  - Toxicity to various agents [None]
  - Pneumonitis [None]
  - Dehydration [None]
  - Device related sepsis [None]
  - Night sweats [None]
  - Bacterial infection [None]
  - Haemodialysis [None]
  - Anaemia [None]
  - Weight decreased [None]
  - Cardiac murmur [None]
  - Renal failure acute [None]
  - Escherichia infection [None]
  - Condition aggravated [None]
  - Platelet count decreased [None]
  - Ejection fraction decreased [None]
  - Nosocomial infection [None]
  - Interstitial lung disease [None]
  - White blood cell count decreased [None]
  - Mitral valve incompetence [None]
  - Hepatic function abnormal [None]
